FAERS Safety Report 8273855-0 (Version None)
Quarter: 2012Q2

REPORT INFORMATION
  Report Type: 
  Country: None (occurrence: None)
  Receive Date: 20120411
  Receipt Date: 20120403
  Transmission Date: 20120825
  Serious: Yes (Hospitalization, Other)
  Sender: FDA-Public Use
  Company Number: US-AMGEN-USASP2011056094

PATIENT
  Age: 15 Year
  Sex: Female
  Weight: 64 kg

DRUGS (19)
  1. NPLATE [Suspect]
     Dosage: 200 MUG, UNK
     Route: 058
     Dates: start: 20111020, end: 20111020
  2. ZYRTEC [Concomitant]
     Dosage: 10 MG, QD
     Route: 048
     Dates: start: 20100101
  3. REMERON [Concomitant]
     Dosage: 22.5 MG, QD
     Route: 048
     Dates: start: 20110101
  4. MAGNESIUM OXIDE [Concomitant]
     Dosage: 800 MG, Q6H
     Dates: start: 20100101
  5. FOLIC ACID [Concomitant]
     Dosage: 1 MG, QD
     Route: 048
  6. VALTREX [Concomitant]
     Dosage: UNK
     Dates: start: 20100101
  7. NPLATE [Suspect]
     Indication: THROMBOCYTOPENIA
     Dosage: 3 MUG/KG, UNK
     Dates: start: 20111005, end: 20111021
  8. NPLATE [Suspect]
     Dosage: 136 MUG, UNK
     Route: 058
     Dates: start: 20111013, end: 20111013
  9. AYGESTIN [Concomitant]
     Dosage: 10 MG, QD
     Dates: start: 20100101
  10. PLAQUENIL [Concomitant]
     Dosage: 400 MG, QD
     Route: 048
     Dates: start: 20111021, end: 20111110
  11. ARTIFICIAL TEARS                   /00445101/ [Concomitant]
     Indication: DRY EYE
  12. VORICONAZOLE [Concomitant]
     Dosage: UNK
     Dates: start: 20100101
  13. VFEND [Concomitant]
     Dosage: 200 MG, BID
     Route: 048
  14. ATARAX [Concomitant]
     Indication: PRURITUS
     Dosage: 25 MG, Q6H
  15. DAPTOMYCIN [Concomitant]
  16. NEUPOGEN [Suspect]
     Dosage: 300 MUG, UNK
     Route: 042
     Dates: start: 20110628
  17. LEVAQUIN [Concomitant]
  18. NPLATE [Suspect]
     Dosage: 65 MUG, UNK
     Route: 058
     Dates: start: 20111005, end: 20111005
  19. BACTROBAN [Concomitant]
     Dosage: UNK
     Dates: start: 20110101

REACTIONS (28)
  - BACTERIAL DISEASE CARRIER [None]
  - PANCYTOPENIA [None]
  - PITYRIASIS RUBRA PILARIS [None]
  - DRUG INEFFECTIVE [None]
  - DERMATITIS [None]
  - LYMPHADENOPATHY [None]
  - VIRAEMIA [None]
  - EPSTEIN-BARR VIRAEMIA [None]
  - THROMBOCYTOPENIA [None]
  - DECREASED APPETITE [None]
  - ADENOVIRUS INFECTION [None]
  - BLOOD PRODUCT TRANSFUSION DEPENDENT [None]
  - BLOOD PRESSURE FLUCTUATION [None]
  - LIP DRY [None]
  - PYREXIA [None]
  - HYPOTENSION [None]
  - LETHARGY [None]
  - NAIL DISORDER [None]
  - SEPSIS [None]
  - DEPRESSION [None]
  - MARROW HYPERPLASIA [None]
  - ENTEROCOLITIS VIRAL [None]
  - HUMAN HERPES VIRUS 6 SEROLOGY POSITIVE [None]
  - COUGH [None]
  - ADVERSE DRUG REACTION [None]
  - RESPIRATORY DISORDER [None]
  - PARONYCHIA [None]
  - SKIN ATROPHY [None]
